FAERS Safety Report 5527406-1 (Version None)
Quarter: 2007Q4

REPORT INFORMATION
  Report Type: 
  Country: None (occurrence: None)
  Receive Date: 20071123
  Receipt Date: 20071108
  Transmission Date: 20080405
  Serious: Yes (Death, Other)
  Sender: FDA-Public Use
  Company Number: 2005BI001750

PATIENT
  Age: 68 Year
  Sex: Female
  Weight: 56.6996 kg

DRUGS (18)
  1. NATALIZUMAB [Suspect]
     Indication: MULTIPLE SCLEROSIS
     Dosage: 300 MG; QM; IV
     Route: 042
     Dates: start: 20041229
  2. AVONEX [Concomitant]
  3. AVONEX [Concomitant]
  4. ZELNORM [Concomitant]
  5. PAXIL [Concomitant]
  6. TRIAMTERENE AND HYDROCHLOROTHIAZIDE [Concomitant]
  7. MULTI-VITAMIN [Concomitant]
  8. CALCIUM [Concomitant]
  9. VITAMIN E [Concomitant]
  10. GLUCOSAMINE [Concomitant]
  11. ASCORBIC ACID [Concomitant]
  12. COENZYME Q10 [Concomitant]
  13. VITAMIN B-12 [Concomitant]
  14. FLONASE [Concomitant]
  15. URISPAS [Concomitant]
  16. CITRACAL [Concomitant]
  17. NEURONTIN [Concomitant]
  18. DETROL [Concomitant]

REACTIONS (3)
  - BEDRIDDEN [None]
  - OVARIAN CANCER [None]
  - RENAL FAILURE [None]
